FAERS Safety Report 24019144 (Version 1)
Quarter: 2024Q2

REPORT INFORMATION
  Report Type: Spontaneous
  Country: EG (occurrence: EG)
  Receive Date: 20240627
  Receipt Date: 20240627
  Transmission Date: 20240715
  Serious: Yes (Life-Threatening, Hospitalization, Other)
  Sender: FDA-Public Use
  Company Number: EG-PFIZER INC-PV202400082678

PATIENT
  Age: 34 Year
  Sex: Female

DRUGS (2)
  1. CARBOPLATIN [Suspect]
     Active Substance: CARBOPLATIN
     Indication: Breast cancer female
     Dosage: EVERY 21 DAYS
     Route: 041
     Dates: start: 20240425, end: 20240606
  2. GEMCITABINE [Concomitant]
     Active Substance: GEMCITABINE
     Indication: Breast cancer female
     Dosage: EVERY 21 DAYS
     Route: 041
     Dates: start: 20240425

REACTIONS (5)
  - Dyspnoea [Not Recovered/Not Resolved]
  - Bronchospasm [Not Recovered/Not Resolved]
  - Erythema [Not Recovered/Not Resolved]
  - Dysarthria [Not Recovered/Not Resolved]
  - Off label use [Unknown]

NARRATIVE: CASE EVENT DATE: 20240425
